FAERS Safety Report 7760149-2 (Version None)
Quarter: 2011Q3

REPORT INFORMATION
  Report Type: 
  Country: None (occurrence: None)
  Receive Date: 20110919
  Receipt Date: 20110915
  Transmission Date: 20111222
  Serious: Yes (Other)
  Sender: FDA-Public Use
  Company Number: US-TEVA-264516USA

PATIENT
  Sex: Male

DRUGS (3)
  1. TAMSULOSIN HCL [Suspect]
     Indication: POLLAKIURIA
     Dates: start: 20090401
  2. CITALOPRAM HYDROBROMIDE [Concomitant]
     Dosage: 40 MILLIGRAM;
  3. OMEPRAZOLE [Concomitant]
     Dosage: 20 MILLIGRAM;

REACTIONS (11)
  - CHROMATURIA [None]
  - MALABSORPTION [None]
  - BLOOD BILIRUBIN INCREASED [None]
  - ABNORMAL FAECES [None]
  - WEIGHT DECREASED [None]
  - DIARRHOEA [None]
  - FAECES DISCOLOURED [None]
  - LIVER INJURY [None]
  - CHOLANGITIS ACUTE [None]
  - JAUNDICE [None]
  - PRURITUS GENERALISED [None]
